FAERS Safety Report 18251511 (Version 1)
Quarter: 2020Q3

REPORT INFORMATION
  Report Type: Spontaneous
  Country: US (occurrence: US)
  Receive Date: 20200910
  Receipt Date: 20200910
  Transmission Date: 20201103
  Serious: No
  Sender: FDA-Public Use
  Company Number: US-DRREDDYS-USA/USA/20/0126475

PATIENT
  Age: 69 Year
  Sex: Female
  Weight: 85.5 kg

DRUGS (2)
  1. COUMADIN [Suspect]
     Active Substance: WARFARIN SODIUM
     Indication: PRODUCT USED FOR UNKNOWN INDICATION
  2. CLOPIDOGREL BISULFATE. [Suspect]
     Active Substance: CLOPIDOGREL BISULFATE
     Route: 048
     Dates: start: 20200630

REACTIONS (7)
  - Product administration error [Unknown]
  - Therapeutic product effect prolonged [Unknown]
  - Malaise [Unknown]
  - Blood urine present [Unknown]
  - Wrong technique in product usage process [Unknown]
  - Fatigue [Unknown]
  - Contusion [Unknown]
